FAERS Safety Report 5705834-9 (Version None)
Quarter: 2008Q2

REPORT INFORMATION
  Report Type: 
  Country: None (occurrence: None)
  Receive Date: 20080415
  Receipt Date: 20080402
  Transmission Date: 20081010
  Serious: Yes (Life-Threatening, Hospitalization)
  Sender: FDA-Public Use
  Company Number: JP-SANOFI-SYNTHELABO-A01200803691

PATIENT
  Age: 54 Year
  Sex: Male

DRUGS (4)
  1. FLUOROURACIL [Suspect]
     Dosage: UNK
     Route: 042
     Dates: start: 20080311, end: 20080311
  2. ISOVORIN [Suspect]
     Dosage: UNK
     Route: 041
     Dates: start: 20080311, end: 20080311
  3. ELPLAT [Suspect]
     Indication: RECTAL CANCER
     Dosage: UNK
     Route: 041
     Dates: start: 20080311, end: 20080311
  4. AVASTIN [Suspect]
     Route: 041
     Dates: start: 20080311, end: 20080311

REACTIONS (2)
  - DISSEMINATED INTRAVASCULAR COAGULATION [None]
  - THROMBOTIC CEREBRAL INFARCTION [None]
